FAERS Safety Report 16044143 (Version 1)
Quarter: 2019Q1

REPORT INFORMATION
  Report Type: Report from Study
  Country: US (occurrence: US)
  Receive Date: 20190306
  Receipt Date: 20190306
  Transmission Date: 20190418
  Serious: Yes (Other)
  Sender: FDA-Public Use
  Company Number: US-GILEAD-2019-0394823

PATIENT
  Age: 37 Year
  Sex: Female

DRUGS (12)
  1. FLUORO URACIL [Concomitant]
     Active Substance: FLUOROURACIL
  2. OXALIPLATIN. [Concomitant]
     Active Substance: OXALIPLATIN
  3. XARELTO [Concomitant]
     Active Substance: RIVAROXABAN
  4. ZETIA [Concomitant]
     Active Substance: EZETIMIBE
  5. IRON [Concomitant]
     Active Substance: IRON
  6. LIPITOR [Concomitant]
     Active Substance: ATORVASTATIN CALCIUM
  7. PRAMIPEXOLE. [Concomitant]
     Active Substance: PRAMIPEXOLE
  8. AZTREONAM LYSINE [Suspect]
     Active Substance: AZTREONAM LYSINE
     Indication: CYSTIC FIBROSIS
     Dosage: 75 MG, TID, 28 DAYS ON THEN 28 DAYS OFF
     Route: 055
     Dates: start: 20140107
  9. CYMBALTA [Concomitant]
     Active Substance: DULOXETINE HYDROCHLORIDE
  10. VITAMIN D [ERGOCALCIFEROL] [Concomitant]
     Active Substance: ERGOCALCIFEROL
  11. HYDROCODONE BITARTRATE AND ACETAMINOPHEN [Concomitant]
     Active Substance: ACETAMINOPHEN\HYDROCODONE BITARTRATE
  12. PROPANOL [Concomitant]
     Active Substance: PROPRANOLOL HYDROCHLORIDE

REACTIONS (2)
  - Bronchoscopy [Unknown]
  - Dyspnoea [Unknown]

NARRATIVE: CASE EVENT DATE: 20190130
